FAERS Safety Report 6334703-9 (Version None)
Quarter: 2009Q3

REPORT INFORMATION
  Report Type: 
  Country: None (occurrence: None)
  Receive Date: 20090831
  Receipt Date: 20090819
  Transmission Date: 20100115
  Serious: Yes (Hospitalization)
  Sender: FDA-Public Use
  Company Number: BE-PFIZER INC-2009256718

PATIENT
  Age: 78 Year

DRUGS (11)
  1. ZYVOXID [Suspect]
     Indication: ENTEROCOCCAL INFECTION
     Dosage: 600 MG, 2X/DAY
     Route: 048
     Dates: start: 20090228, end: 20090331
  2. COVERSYL [Concomitant]
     Dosage: 5 MG, 1X/DAY
     Route: 048
  3. TILDIEM - SLOW RELEASE ^LOREX^ [Concomitant]
     Dosage: 800 MG, 1X/DAY
     Route: 048
  4. BEFACT [Concomitant]
     Dosage: UNK
     Route: 048
  5. ZOCOR [Concomitant]
     Dosage: 40 MG, 1X/DAY
     Route: 048
  6. TERAZOSIN [Concomitant]
     Dosage: 5 MG, 1X/DAY
     Route: 048
  7. LEXOTAN [Concomitant]
     Dosage: 3 MG, 1X/DAY
     Route: 048
  8. CLEXANE [Concomitant]
     Dosage: 100 MG, 1X/DAY
     Route: 058
  9. MARCUMAR [Concomitant]
     Dosage: UNK
     Route: 048
  10. FOLAVIT [Concomitant]
     Dosage: 4 MG, 1X/DAY
     Route: 048
  11. PARACETAMOL [Concomitant]
     Route: 048

REACTIONS (2)
  - DYSPNOEA [None]
  - FATIGUE [None]
